FAERS Safety Report 9547610 (Version 1)
Quarter: 2013Q3

REPORT INFORMATION
  Report Type: Spontaneous
  Country: US (occurrence: None)
  Receive Date: 20130923
  Receipt Date: 20130923
  Transmission Date: 20140515
  Serious: Yes (Hospitalization, Other)
  Sender: FDA-Public Use
  Company Number: None

PATIENT
  Age: 80 Year
  Sex: Female
  Weight: 54.43 kg

DRUGS (2)
  1. ZOLEDRONIC ACID [Suspect]
     Indication: OSTEOPOROSIS
     Dosage: YEARLY ?IV INFUSION
     Route: 042
  2. LISINOPRIL [Concomitant]

REACTIONS (6)
  - Influenza like illness [None]
  - Pelvic pain [None]
  - Paraesthesia [None]
  - Muscular weakness [None]
  - Activities of daily living impaired [None]
  - Tenderness [None]
